FAERS Safety Report 6705101-0 (Version None)
Quarter: 2010Q2

REPORT INFORMATION
  Report Type: 
  Country: None (occurrence: None)
  Receive Date: 20100430
  Receipt Date: 20100224
  Transmission Date: 20101027
  Serious: No
  Sender: FDA-Public Use
  Company Number: US-ASTRAZENECA-2010SE08105

PATIENT
  Age: 57 Year
  Sex: Male
  Weight: 72.6 kg

DRUGS (4)
  1. NEXIUM [Suspect]
     Indication: GASTROOESOPHAGEAL REFLUX DISEASE
     Route: 048
     Dates: start: 20091101, end: 20100201
  2. NEXIUM [Suspect]
     Dosage: 2 TABLETS QD
     Route: 048
     Dates: start: 20100201
  3. CALAN [Concomitant]
  4. THEOPHYLLINE [Concomitant]

REACTIONS (2)
  - DRUG INEFFECTIVE [None]
  - GASTROOESOPHAGEAL REFLUX DISEASE [None]
